FAERS Safety Report 4688777-1 (Version None)
Quarter: 2005Q2

REPORT INFORMATION
  Report Type: 
  Country: None (occurrence: None)
  Receive Date: 20050608
  Receipt Date: 20050420
  Transmission Date: 20051028
  Serious: No
  Sender: FDA-Public Use
  Company Number: 2005-BP-06671BP

PATIENT
  Age: 64 Year
  Sex: Female

DRUGS (5)
  1. SPIRIVA [Suspect]
     Indication: CHRONIC OBSTRUCTIVE PULMONARY DISEASE
     Dosage: 18 MCG (18 MCG), IH
     Route: 055
     Dates: start: 20050419
  2. VERAPAMIL [Concomitant]
  3. LEVOXYL [Concomitant]
  4. MICARDIS [Concomitant]
  5. PREMPRO 14/14 [Concomitant]

REACTIONS (1)
  - NAUSEA [None]
